FAERS Safety Report 16672970 (Version 3)
Quarter: 2019Q4

REPORT INFORMATION
  Report Type: Spontaneous
  Country: CA (occurrence: CA)
  Receive Date: 20190806
  Receipt Date: 20191120
  Transmission Date: 20200122
  Serious: Yes (Death, Life-Threatening, Hospitalization, Other)
  Sender: FDA-Public Use
  Company Number: CA-PFIZER INC-2019329931

PATIENT
  Weight: .65 kg

DRUGS (8)
  1. AMPICILLIN [Suspect]
     Active Substance: AMPICILLIN
     Indication: ANTIBIOTIC THERAPY
     Dosage: 50 MG/KG, 2X/DAY (EVERY 12 HOURS)
     Route: 042
  2. CEFOTAXIME [Suspect]
     Active Substance: CEFOTAXIME SODIUM
     Indication: ANTIBIOTIC THERAPY
     Dosage: 50 MG/KG, 2X/DAY  (EVERY 12 HOURS)
     Route: 042
  3. BETAMETHASON [BETAMETHASONE] [Suspect]
     Active Substance: BETAMETHASONE
     Dosage: UNK
     Route: 064
  4. AMOXICILLIN. [Suspect]
     Active Substance: AMOXICILLIN
     Dosage: UNK
     Route: 064
  5. MEROPENEM. [Suspect]
     Active Substance: MEROPENEM
     Indication: RESPIRATORY TRACT INFECTION
     Dosage: 20 MG/KG, 2X/DAY (EVERY 12 HOURS)
  6. VANCOMYCIN HCL [Suspect]
     Active Substance: VANCOMYCIN HYDROCHLORIDE
     Indication: ANTIBIOTIC THERAPY
     Dosage: 15 MG/KG, 1X/DAY (EVERY 24 HOURS)
     Route: 042
  7. GENTAMICIN SULFATE. [Suspect]
     Active Substance: GENTAMICIN SULFATE
     Indication: ANTIBIOTIC THERAPY
     Dosage: 5 MG/KG; EVERY 48 HOURS
     Route: 042
  8. ERYTHROMYCIN. [Suspect]
     Active Substance: ERYTHROMYCIN
     Dosage: UNK
     Route: 064

REACTIONS (9)
  - Lethargy [Unknown]
  - Pneumonia bacterial [Fatal]
  - Hypotonia [Unknown]
  - Renal impairment neonatal [Fatal]
  - Maternal exposure during pregnancy [Unknown]
  - Premature baby [Unknown]
  - Stenotrophomonas infection [Fatal]
  - Respiratory disorder neonatal [Unknown]
  - Umbilical erythema [Unknown]
